FAERS Safety Report 9098010 (Version 1)
Quarter: 2013Q1

REPORT INFORMATION
  Report Type: Spontaneous
  Country: FR (occurrence: FR)
  Receive Date: 20130212
  Receipt Date: 20130212
  Transmission Date: 20140127
  Serious: Yes (Other)
  Sender: FDA-Public Use
  Company Number: FR-SANOFI-AVENTIS-2012SA089000

PATIENT
  Age: 59 Year
  Sex: Female

DRUGS (3)
  1. PLAQUENIL [Suspect]
     Indication: RHEUMATOID ARTHRITIS
     Route: 048
     Dates: start: 20121106, end: 20121127
  2. LIVIAL [Concomitant]
  3. CORTANCYL [Concomitant]
     Indication: RHEUMATOID ARTHRITIS
     Route: 048
     Dates: start: 20121001

REACTIONS (21)
  - Drug reaction with eosinophilia and systemic symptoms [Recovered/Resolved]
  - Rash maculo-papular [Unknown]
  - Skin burning sensation [Unknown]
  - Nervousness [Unknown]
  - Nausea [Unknown]
  - Decreased appetite [Unknown]
  - Abdominal pain [Unknown]
  - Pyrexia [Unknown]
  - Dizziness [Unknown]
  - Rash [Unknown]
  - Pruritus [Unknown]
  - Genital swelling [Unknown]
  - Tinnitus [Unknown]
  - Chest discomfort [Unknown]
  - Eyelid oedema [Unknown]
  - Eyelid irritation [Unknown]
  - Dry skin [Unknown]
  - Eosinophilia [Recovered/Resolved]
  - Chills [Recovered/Resolved]
  - Odynophagia [Recovered/Resolved]
  - Swelling face [Recovered/Resolved]
